FAERS Safety Report 7508507-5 (Version None)
Quarter: 2011Q2

REPORT INFORMATION
  Report Type: 
  Country: None (occurrence: None)
  Receive Date: 20110527
  Receipt Date: 20110520
  Transmission Date: 20111010
  Serious: Yes (Other)
  Sender: FDA-Public Use
  Company Number: JP-PFIZER INC-2011065901

PATIENT
  Age: 69 Year
  Sex: Female
  Weight: 51 kg

DRUGS (7)
  1. FRANDOL [Concomitant]
     Indication: ACUTE CORONARY SYNDROME
     Dosage: UNK
     Dates: start: 20101013, end: 20101021
  2. PLAVIX [Suspect]
     Dosage: 75 MG DAILY
     Route: 048
     Dates: start: 20101021, end: 20101221
  3. MICARDIS [Suspect]
     Indication: HYPERTENSION
     Dosage: 20 MG, DAILY
     Route: 048
     Dates: start: 20101021, end: 20110315
  4. ASPIRIN [Concomitant]
     Indication: ACUTE CORONARY SYNDROME
     Dosage: UNK
     Route: 048
     Dates: start: 20101013
  5. LANSOPRAZOLE [Concomitant]
     Indication: PROPHYLAXIS
     Dosage: UNK
     Route: 048
     Dates: start: 20101013
  6. ATORVASTATIN CALCIUM [Suspect]
     Indication: HYPERCHOLESTEROLAEMIA
     Dosage: 10 MG, 1X/DAY
     Route: 048
     Dates: start: 20101013, end: 20110118
  7. ISOSORBIDE DINITRATE [Suspect]
     Indication: ACUTE CORONARY SYNDROME
     Dosage: 40 MG, DAILY
     Route: 048
     Dates: start: 20101105, end: 20110118

REACTIONS (1)
  - PANCYTOPENIA [None]
